FAERS Safety Report 23351691 (Version 1)
Quarter: 2023Q4

REPORT INFORMATION
  Report Type: Spontaneous
  Country: US (occurrence: None)
  Receive Date: 20231229
  Receipt Date: 20231229
  Transmission Date: 20240110
  Serious: Yes (Hospitalization)
  Sender: FDA-Public Use
  Company Number: None

PATIENT
  Age: 35 Year
  Sex: Male

DRUGS (1)
  1. OCTREOTIDE ACETATE [Suspect]
     Active Substance: OCTREOTIDE ACETATE
     Indication: Hypoglycaemia
     Dosage: OTHER STRENGTH : 100MCG/ML;?FREQUENCY : 3 TIMES A DAY;?

REACTIONS (3)
  - Atrial fibrillation [None]
  - Gallbladder disorder [None]
  - Sinus tachycardia [None]
